FAERS Safety Report 4314943-0 (Version None)
Quarter: 2004Q1

REPORT INFORMATION
  Report Type: 
  Country: None (occurrence: None)
  Receive Date: 20040310
  Receipt Date: 20040310
  Transmission Date: 20041129
  Serious: Yes (Hospitalization)
  Sender: FDA-Public Use
  Company Number: None

PATIENT
  Age: 4 Year
  Sex: Female
  Weight: 25 kg

DRUGS (4)
  1. LAMOTRIGINE [Suspect]
     Indication: CONVULSION
     Dosage: 12.5 MG BID PO
     Route: 048
  2. VALPROIC ACID [Concomitant]
  3. ADDERALL 10 [Concomitant]
  4. SEROQUEL [Concomitant]

REACTIONS (6)
  - CHAPPED LIPS [None]
  - EYE IRRITATION [None]
  - INFLUENZA LIKE ILLNESS [None]
  - LIP HAEMORRHAGE [None]
  - RASH [None]
  - STEVENS-JOHNSON SYNDROME [None]
